FAERS Safety Report 12222958 (Version 1)
Quarter: 2016Q1

REPORT INFORMATION
  Report Type: Spontaneous
  Country: US (occurrence: US)
  Receive Date: 20160330
  Receipt Date: 20160330
  Transmission Date: 20160526
  Serious: No
  Sender: FDA-Public Use
  Company Number: US-PERRIGO-15US008798

PATIENT
  Age: 83 Year
  Sex: Female
  Weight: 68.27 kg

DRUGS (4)
  1. BACLOFEN. [Concomitant]
     Active Substance: BACLOFEN
     Indication: PAIN
     Dosage: 10MG
     Route: 065
     Dates: start: 201507, end: 20150820
  2. ACETAMINOPHEN. [Suspect]
     Active Substance: ACETAMINOPHEN
     Indication: ARTHRALGIA
     Dosage: 1/2 TABLET, SINGLE
     Route: 048
     Dates: start: 20150817, end: 20150817
  3. ASPIRIN. [Concomitant]
     Active Substance: ASPIRIN
     Indication: SUPPLEMENTATION THERAPY
     Dosage: 81 MG
     Route: 065
     Dates: start: 2012, end: 201508
  4. ACETAMINOPHEN. [Suspect]
     Active Substance: ACETAMINOPHEN
     Dosage: 650 MG, QD AT BEDTIME
     Route: 048
     Dates: start: 20150818

REACTIONS (3)
  - No adverse event [Unknown]
  - Incorrect dose administered [Not Recovered/Not Resolved]
  - Wrong technique in product usage process [Recovered/Resolved]

NARRATIVE: CASE EVENT DATE: 20150817
